FAERS Safety Report 8445791-8 (Version None)
Quarter: 2012Q2

REPORT INFORMATION
  Report Type: 
  Country: None (occurrence: None)
  Receive Date: 20120618
  Receipt Date: 20120613
  Transmission Date: 20120825
  Serious: Yes (Hospitalization, Other)
  Sender: FDA-Public Use
  Company Number: US-PFIZER INC-2011032286

PATIENT
  Sex: Male

DRUGS (30)
  1. CHANTIX [Suspect]
     Dosage: STARTER AND CONTINUING MONTH PACK
     Dates: start: 20090401, end: 20090601
  2. ZYPREXA [Concomitant]
     Indication: PSYCHOTIC DISORDER
  3. SEROQUEL [Concomitant]
     Indication: INSOMNIA
  4. ALBUTEROL [Concomitant]
     Indication: ASTHMA
     Dosage: UNK
     Dates: start: 20050101, end: 20100101
  5. LEVOSALBUTAMOL [Concomitant]
     Indication: CHRONIC OBSTRUCTIVE PULMONARY DISEASE
  6. HYDROCODONE BITARTRATE + ACETAMINOPHEN [Concomitant]
     Indication: PAIN IN EXTREMITY
  7. HYDROCODONE BITARTRATE + ACETAMINOPHEN [Concomitant]
     Indication: HAND FRACTURE
  8. AMMONIUM LACTATE [Concomitant]
     Indication: ECZEMA NUMMULAR
     Dosage: UNK
     Dates: start: 20060101, end: 20100101
  9. NITROGLYCERIN [Concomitant]
     Indication: CHEST PAIN
     Dosage: UNK
     Dates: start: 20050101, end: 20100101
  10. SIMVASTATIN [Concomitant]
     Indication: HYPERLIPIDAEMIA
     Dosage: UNK
     Dates: start: 20060101, end: 20090101
  11. HYDROCODONE BITARTRATE + ACETAMINOPHEN [Concomitant]
     Indication: JOINT INJURY
  12. CHANTIX [Suspect]
     Dosage: STARTER AND CONTINUING MONTH PACK,
     Dates: start: 20080401, end: 20080501
  13. ATENOLOL [Concomitant]
     Indication: HYPERTENSION
     Dosage: UNK
     Dates: start: 20060101, end: 20090101
  14. MUPIROCIN [Concomitant]
     Indication: ANTIBIOTIC THERAPY
     Dosage: UNK
     Dates: start: 20060101, end: 20100101
  15. HYDROCODONE BITARTRATE + ACETAMINOPHEN [Concomitant]
     Indication: ARTHRALGIA
     Dosage: UNK
     Dates: start: 20060101, end: 20100101
  16. SEROQUEL [Concomitant]
     Indication: SCHIZOAFFECTIVE DISORDER
  17. CEPHALEXIN [Concomitant]
     Indication: ANTIBIOTIC THERAPY
     Dosage: UNK
     Dates: start: 20060101, end: 20080101
  18. CHANTIX [Suspect]
     Indication: SMOKING CESSATION THERAPY
     Dosage: STARTER AND CONTINUING MONTH PACK
     Dates: start: 20070701, end: 20070801
  19. ZYPREXA [Concomitant]
     Indication: SCHIZOAFFECTIVE DISORDER
     Dosage: UNK
     Dates: start: 20050101, end: 20090101
  20. SEROQUEL [Concomitant]
     Indication: DEPRESSION
     Dosage: UNK
     Dates: start: 20050101
  21. SEROQUEL [Concomitant]
     Indication: POST-TRAUMATIC STRESS DISORDER
  22. HYDROXYZINE [Concomitant]
     Indication: ECZEMA NUMMULAR
     Dosage: UNK
     Dates: start: 20050101, end: 20100101
  23. OMEPRAZOLE [Concomitant]
     Indication: GASTROOESOPHAGEAL REFLUX DISEASE
     Dosage: UNK
     Dates: start: 20050101, end: 20100101
  24. TRIAMCINOLONE [Concomitant]
     Indication: ECZEMA NUMMULAR
     Dosage: UNK
     Dates: start: 20050101, end: 20100101
  25. BETAMETHASONE [Concomitant]
     Indication: ECZEMA NUMMULAR
     Dosage: UNK
     Dates: start: 20060101, end: 20080101
  26. AQUAPHOR HEALING OINTMENT [Concomitant]
     Indication: ECZEMA NUMMULAR
     Dosage: UNK
     Dates: start: 20060101, end: 20080101
  27. CITALOPRAM [Concomitant]
     Indication: DEPRESSION
     Dosage: UNK
     Dates: start: 20050101, end: 20080101
  28. NICOTINE [Concomitant]
     Indication: SMOKING CESSATION THERAPY
     Dosage: UNK
     Route: 062
     Dates: start: 20060101, end: 20080101
  29. LEVOSALBUTAMOL [Concomitant]
     Indication: ASTHMA
     Dosage: UNK
     Dates: start: 20060101, end: 20080101
  30. HYDROCODONE BITARTRATE + ACETAMINOPHEN [Concomitant]
     Indication: BACK PAIN

REACTIONS (14)
  - ANGER [None]
  - SUICIDE ATTEMPT [None]
  - HALLUCINATION, AUDITORY [None]
  - PARANOIA [None]
  - BIPOLAR DISORDER [None]
  - SUICIDAL IDEATION [None]
  - DEPRESSION [None]
  - PSYCHOTIC DISORDER [None]
  - HALLUCINATION, VISUAL [None]
  - AGGRESSION [None]
  - SCHIZOAFFECTIVE DISORDER [None]
  - POST-TRAUMATIC STRESS DISORDER [None]
  - IRRITABILITY [None]
  - ANXIETY [None]
